FAERS Safety Report 14742562 (Version 2)
Quarter: 2018Q2

REPORT INFORMATION
  Report Type: Spontaneous
  Country: US (occurrence: US)
  Receive Date: 20180410
  Receipt Date: 20180528
  Transmission Date: 20180711
  Serious: No
  Sender: FDA-Public Use
  Company Number: PHEH2018US013741

PATIENT
  Sex: Female

DRUGS (1)
  1. TYKERB [Suspect]
     Active Substance: LAPATINIB DITOSYLATE
     Indication: NEOPLASM MALIGNANT
     Dosage: 1250 MG, QD
     Route: 048
     Dates: start: 20180306

REACTIONS (8)
  - Nausea [Unknown]
  - Skin exfoliation [Unknown]
  - Fingerprint loss [Unknown]
  - Dry skin [Unknown]
  - Paraesthesia [Unknown]
  - Blister [Unknown]
  - Oral discomfort [Unknown]
  - Diarrhoea [Unknown]
